FAERS Safety Report 14193692 (Version 1)
Quarter: 2017Q4

REPORT INFORMATION
  Report Type: Spontaneous
  Country: DE (occurrence: DE)
  Receive Date: 20171115
  Receipt Date: 20171115
  Transmission Date: 20180321
  Serious: Yes (Other)
  Sender: FDA-Public Use
  Company Number: DE-ALLERGAN-1764949US

PATIENT
  Age: 35 Year
  Sex: Female

DRUGS (2)
  1. URSODEOXYCHOLIC ACID UNK [Suspect]
     Active Substance: URSODIOL
     Indication: CHOLESTASIS OF PREGNANCY
     Dosage: 250 MG, BID
     Route: 065
  2. URSODEOXYCHOLIC ACID UNK [Suspect]
     Active Substance: URSODIOL
     Dosage: 13 MG/KG, QD
     Route: 065

REACTIONS (6)
  - Meconium in amniotic fluid [Unknown]
  - Off label use [Unknown]
  - Drug ineffective for unapproved indication [Unknown]
  - Pruritus [Unknown]
  - Preterm premature rupture of membranes [Unknown]
  - Pregnancy [Unknown]
